FAERS Safety Report 23713805 (Version 1)
Quarter: 2024Q2

REPORT INFORMATION
  Report Type: Spontaneous
  Country: FR (occurrence: FR)
  Receive Date: 20240405
  Receipt Date: 20240405
  Transmission Date: 20240716
  Serious: Yes (Disabling, Other)
  Sender: FDA-Public Use
  Company Number: FR-AKCEA THERAPEUTICS, INC.-2024IS003115

PATIENT

DRUGS (1)
  1. TEGSEDI [Suspect]
     Active Substance: INOTERSEN SODIUM
     Indication: Product used for unknown indication
     Dosage: 284 MILLIGRAM (SOLUTION FOR INJECTION IN PREFILLED SYRINGE)
     Route: 065
     Dates: start: 2013

REACTIONS (7)
  - Visual impairment [Unknown]
  - Cystitis [Unknown]
  - Depressed mood [Not Recovered/Not Resolved]
  - Urinary tract disorder [Unknown]
  - Urinary tract infection [Unknown]
  - Dry eye [Unknown]
  - Poor quality sleep [Unknown]
